FAERS Safety Report 5346401-9 (Version None)
Quarter: 2007Q2

REPORT INFORMATION
  Report Type: 
  Country: None (occurrence: None)
  Receive Date: 20070430
  Receipt Date: 20070327
  Transmission Date: 20071010
  Serious: No
  Sender: FDA-Public Use
  Company Number: 012892

PATIENT
  Age: 81 Year
  Sex: Female

DRUGS (1)
  1. PRIALT [Suspect]
     Indication: BACK PAIN
     Dosage: ONCE/HOUR, INTRATHECAL
     Route: 037
     Dates: end: 20070101

REACTIONS (4)
  - DEMENTIA [None]
  - FEELING ABNORMAL [None]
  - HALLUCINATION [None]
  - MENTAL IMPAIRMENT [None]
